FAERS Safety Report 14439786 (Version 1)
Quarter: 2018Q1

REPORT INFORMATION
  Report Type: Spontaneous
  Country: US (occurrence: US)
  Receive Date: 20180125
  Receipt Date: 20180125
  Transmission Date: 20180509
  Serious: No
  Sender: FDA-Public Use
  Company Number: US-BAYER-2018-013611

PATIENT
  Age: 80 Year
  Sex: Female
  Weight: 75 kg

DRUGS (4)
  1. ALEVE PM [Suspect]
     Active Substance: DIPHENHYDRAMINE HYDROCHLORIDE\NAPROXEN SODIUM
     Route: 048
     Dates: end: 20180118
  2. ALEVE [Suspect]
     Active Substance: NAPROXEN SODIUM
     Indication: PAIN
     Route: 048
     Dates: end: 20180119
  3. ATENOLOL. [Concomitant]
     Active Substance: ATENOLOL
  4. ALEVE [Suspect]
     Active Substance: NAPROXEN SODIUM
     Route: 048
     Dates: end: 20180118

REACTIONS (2)
  - Product use issue [Unknown]
  - Product use issue [Unknown]

NARRATIVE: CASE EVENT DATE: 20180119
